FAERS Safety Report 17483574 (Version 1)
Quarter: 2020Q1

REPORT INFORMATION
  Report Type: Spontaneous
  Country: US (occurrence: US)
  Receive Date: 20200218
  Receipt Date: 20200218
  Transmission Date: 20200409
  Serious: Yes (Other)
  Sender: FDA-Public Use
  Company Number: None

PATIENT
  Age: 60 Year
  Sex: Female
  Weight: 91.63 kg

DRUGS (10)
  1. DUREZOL [Concomitant]
     Active Substance: DIFLUPREDNATE
  2. HUMIRA [Concomitant]
     Active Substance: ADALIMUMAB
  3. LOSARTAN. [Concomitant]
     Active Substance: LOSARTAN
  4. VIT D [Concomitant]
     Active Substance: VITAMIN D NOS
  5. BITION [Concomitant]
  6. INVELTYS [Suspect]
     Active Substance: LOTEPREDNOL ETABONATE
     Indication: EYE INFLAMMATION
     Dosage: ?          QUANTITY:170 DF DROPS;?
     Route: 047
     Dates: start: 20191227, end: 20191229
  7. SPIRONOLACTON [Concomitant]
     Active Substance: SPIRONOLACTONE
  8. TYLENO [Concomitant]
  9. TEMAZEPAM. [Concomitant]
     Active Substance: TEMAZEPAM
  10. VITAMIN C [Concomitant]
     Active Substance: ASCORBIC ACID

REACTIONS (2)
  - Eye pain [None]
  - Pruritus [None]

NARRATIVE: CASE EVENT DATE: 20191227
